FAERS Safety Report 4553703-2 (Version None)
Quarter: 2005Q1

REPORT INFORMATION
  Report Type: 
  Country: None (occurrence: None)
  Receive Date: 20050114
  Receipt Date: 20050114
  Transmission Date: 20050727
  Serious: Yes (Other)
  Sender: FDA-Public Use
  Company Number: None

PATIENT
  Age: 45 Year
  Sex: Female
  Weight: 64.8644 kg

DRUGS (5)
  1. LIPITOR [Suspect]
     Indication: BLOOD CHOLESTEROL INCREASED
     Dosage: 1 PILL
     Dates: start: 20040515, end: 20040630
  2. CRESTOR [Suspect]
     Indication: BLOOD CHOLESTEROL INCREASED
     Dosage: 1 PILL
     Dates: start: 20050902, end: 20051125
  3. ZYRTEC-D 12 HOUR [Concomitant]
  4. FLONASE [Concomitant]
  5. MULTIVITAMIN WITH IRON [Concomitant]

REACTIONS (5)
  - AMNESIA [None]
  - ARTHRALGIA [None]
  - BURNING SENSATION [None]
  - MEMORY IMPAIRMENT [None]
  - MYALGIA [None]
